FAERS Safety Report 11143706 (Version 1)
Quarter: 2015Q2

REPORT INFORMATION
  Report Type: Spontaneous
  Country: US (occurrence: US)
  Receive Date: 20150528
  Receipt Date: 20150528
  Transmission Date: 20150821
  Serious: Yes (Life-Threatening, Hospitalization)
  Sender: FDA-Public Use
  Company Number: US-AUROBINDO-AUR-APL-2015-03916

PATIENT
  Age: 59 Year
  Sex: Male

DRUGS (1)
  1. METOPROLOL [Suspect]
     Active Substance: METOPROLOL
     Indication: PRODUCT USED FOR UNKNOWN INDICATION
     Dosage: 7.5 G, UNK
     Route: 065

REACTIONS (24)
  - Cardiac arrest [Unknown]
  - Atrial fibrillation [Unknown]
  - Blood glucose increased [Unknown]
  - Torsade de pointes [Unknown]
  - Hypokalaemia [Unknown]
  - Blood creatinine increased [Unknown]
  - Blood pressure abnormal [Unknown]
  - Hypokinesia [Unknown]
  - Hypomagnesaemia [Unknown]
  - Bradycardia [Unknown]
  - Cyanosis [Unknown]
  - Radial pulse decreased [Unknown]
  - Hyperhidrosis [Unknown]
  - Asthenia [Unknown]
  - Vomiting [Unknown]
  - Hypotension [Unknown]
  - Hyperglycaemia [Unknown]
  - Torsade de pointes [Recovered/Resolved]
  - Pulseless electrical activity [Unknown]
  - Overdose [Unknown]
  - Electrolyte imbalance [Unknown]
  - Mental impairment [Unknown]
  - Gait disturbance [Unknown]
  - Dyspnoea [Unknown]
